FAERS Safety Report 5477514-9 (Version None)
Quarter: 2007Q4

REPORT INFORMATION
  Report Type: 
  Country: None (occurrence: None)
  Receive Date: 20071004
  Receipt Date: 20070925
  Transmission Date: 20080405
  Serious: Yes (Other)
  Sender: FDA-Public Use
  Company Number: US-PFIZER INC-2007059634

PATIENT
  Sex: Male
  Weight: 63.5 kg

DRUGS (1)
  1. NICOTROL [Suspect]
     Indication: SMOKING CESSATION THERAPY
     Dates: start: 20070101, end: 20070701

REACTIONS (3)
  - BLISTER [None]
  - INFLAMMATION [None]
  - INTENTIONAL DRUG MISUSE [None]
